FAERS Safety Report 8621579-X (Version None)
Quarter: 2012Q3

REPORT INFORMATION
  Report Type: 
  Country: None (occurrence: None)
  Receive Date: 20120820
  Receipt Date: 20120820
  Transmission Date: 20120928
  Serious: Yes (Disabling, Other)
  Sender: FDA-Public Use
  Company Number: None

PATIENT
  Sex: Female
  Weight: 53.5244 kg

DRUGS (1)
  1. KENALOG-40 [Suspect]
     Indication: ARTHRALGIA
     Dosage: 10 1 INJECTION IM
     Route: 030
     Dates: start: 20120227, end: 20120815

REACTIONS (8)
  - GAIT DISTURBANCE [None]
  - FRUSTRATION [None]
  - INJECTION SITE ATROPHY [None]
  - ARTHRALGIA [None]
  - CONFUSIONAL STATE [None]
  - JOINT INJURY [None]
  - FALL [None]
  - JOINT STIFFNESS [None]
